FAERS Safety Report 25106748 (Version 1)
Quarter: 2025Q1

REPORT INFORMATION
  Report Type: Spontaneous
  Country: FR (occurrence: FR)
  Receive Date: 20250321
  Receipt Date: 20250321
  Transmission Date: 20250409
  Serious: Yes (Life-Threatening)
  Sender: MERCK SHARP & DOHME LLC
  Company Number: None

PATIENT
  Age: 34 Year
  Sex: Female
  Weight: 60 kg

DRUGS (10)
  1. KEYTRUDA [Suspect]
     Active Substance: PEMBROLIZUMAB
     Indication: Triple negative breast cancer
     Dosage: 2 TREATMENTS RECEIVED D1D21
     Route: 042
     Dates: start: 20241113, end: 20241113
  2. KEYTRUDA [Suspect]
     Active Substance: PEMBROLIZUMAB
     Indication: Triple negative breast cancer
     Dosage: 2 TREATMENTS RECEIVED D1D21
     Route: 042
     Dates: start: 20241204, end: 20241204
  3. ACETAMINOPHEN [Concomitant]
     Active Substance: ACETAMINOPHEN
     Indication: Pain
     Route: 048
     Dates: start: 20240702
  4. CARBOPLATIN [Concomitant]
     Active Substance: CARBOPLATIN
     Indication: Triple negative breast cancer
     Dosage: 1 TREATMENT RECEIVED D1 D8 D15
     Route: 042
     Dates: start: 20241120, end: 20241120
  5. CARBOPLATIN [Concomitant]
     Active Substance: CARBOPLATIN
     Indication: Triple negative breast cancer
     Dosage: 1 TREATMENT RECEIVED D1 D8 D15
     Route: 042
     Dates: start: 20241127, end: 20241127
  6. CARBOPLATIN [Concomitant]
     Active Substance: CARBOPLATIN
     Indication: Triple negative breast cancer
     Dosage: 1 TREATMENT RECEIVED D1 D8 D15
     Route: 042
     Dates: start: 20241113, end: 20241113
  7. PACLITAXEL [Concomitant]
     Active Substance: PACLITAXEL
     Indication: Triple negative breast cancer
     Dosage: C1J1 J8 J15 RECEIVED
     Route: 042
     Dates: start: 20241120, end: 20241120
  8. PACLITAXEL [Concomitant]
     Active Substance: PACLITAXEL
     Indication: Triple negative breast cancer
     Dosage: C1J1 J8 J15 RECEIVED
     Route: 042
     Dates: start: 20241113, end: 20241113
  9. PACLITAXEL [Concomitant]
     Active Substance: PACLITAXEL
     Indication: Triple negative breast cancer
     Dosage: C1J1 J8 J15 RECEIVED
     Route: 042
     Dates: start: 20241127, end: 20241127
  10. HYDROXYCHLOROQUINE SULFATE [Concomitant]
     Active Substance: HYDROXYCHLOROQUINE SULFATE
     Indication: Sjogren^s syndrome
     Route: 048
     Dates: start: 20240702

REACTIONS (4)
  - Myositis [Recovered/Resolved]
  - Muscular weakness [Recovered/Resolved]
  - Neuromyelitis optica spectrum disorder [Recovering/Resolving]
  - Pruritus [Recovered/Resolved]

NARRATIVE: CASE EVENT DATE: 20241210
